FAERS Safety Report 7776070-X (Version None)
Quarter: 2011Q3

REPORT INFORMATION
  Report Type: 
  Country: None (occurrence: None)
  Receive Date: 20110925
  Receipt Date: 20110920
  Transmission Date: 20111222
  Serious: Yes (Other)
  Sender: FDA-Public Use
  Company Number: GR-AMGEN LTD.-QUU440016

PATIENT
  Age: 52 Year
  Sex: Female
  Weight: 55 kg

DRUGS (6)
  1. NPLATE [Suspect]
     Indication: IDIOPATHIC THROMBOCYTOPENIC PURPURA
     Dosage: 7 MUG/KG, QWK
     Route: 058
     Dates: start: 20090916
  2. GLUCOSAMINE W/CHONDROITIN SULFATES [Suspect]
     Dosage: UNK UNK, UNK
     Route: 048
     Dates: start: 20100701, end: 20100730
  3. METHYLPREDNISOLONE [Concomitant]
     Dosage: UNK UNK, UNK
     Route: 048
     Dates: start: 20090701, end: 20091202
  4. INSULIN [Concomitant]
     Dosage: UNK UNK, BID
     Route: 058
     Dates: start: 20090701, end: 20100101
  5. GLICLAZIDE [Concomitant]
     Dosage: UNK UNK, UNK
     Route: 048
     Dates: start: 20100130, end: 20100301
  6. COLCHICINE [Suspect]
     Dosage: UNK UNK, BID
     Route: 048
     Dates: start: 20100104, end: 20100108

REACTIONS (1)
  - THERAPEUTIC RESPONSE DECREASED [None]
